FAERS Safety Report 7317507-X (Version None)
Quarter: 2011Q1

REPORT INFORMATION
  Report Type: 
  Country: None (occurrence: None)
  Receive Date: 20110226
  Receipt Date: 20101110
  Transmission Date: 20110831
  Serious: No
  Sender: FDA-Public Use
  Company Number: US-ALLERGAN-1014596US

PATIENT
  Age: 50 Year
  Sex: Female

DRUGS (2)
  1. BOTOXA? [Suspect]
     Indication: FACIAL SPASM
     Dosage: UNK
     Route: 030
     Dates: start: 20100921, end: 20100921
  2. STEROIDS NOS [Concomitant]
     Indication: BRAIN NEOPLASM

REACTIONS (6)
  - FALL [None]
  - MUSCULAR WEAKNESS [None]
  - VERTIGO [None]
  - ASTHENIA [None]
  - EYELID PTOSIS [None]
  - SPEECH DISORDER [None]
